FAERS Safety Report 21211798 (Version 2)
Quarter: 2022Q3

REPORT INFORMATION
  Report Type: Spontaneous
  Country: CA (occurrence: CA)
  Receive Date: 20220815
  Receipt Date: 20220922
  Transmission Date: 20221027
  Serious: No
  Sender: FDA-Public Use
  Company Number: CA-PFIZER INC-PV202200033435

PATIENT

DRUGS (1)
  1. CALCIUM CHLORIDE [Suspect]
     Active Substance: CALCIUM CHLORIDE
     Dosage: UNK

REACTIONS (2)
  - Device breakage [Unknown]
  - Device leakage [Unknown]
